FAERS Safety Report 4437786-6 (Version None)
Quarter: 2004Q3

REPORT INFORMATION
  Report Type: 
  Country: None (occurrence: None)
  Receive Date: 20040827
  Receipt Date: 20040813
  Transmission Date: 20050211
  Serious: Yes (Hospitalization)
  Sender: FDA-Public Use
  Company Number: 04P-028-0270961-00

PATIENT
  Age: 51 Year
  Sex: Male

DRUGS (8)
  1. KALETRA [Suspect]
     Indication: HIV INFECTION
     Dosage: 800 MG, 1 IN 1 D, PER ORAL
     Route: 048
     Dates: start: 20040204
  2. IMODIUM [Concomitant]
  3. RANITIDINE [Concomitant]
  4. LAMIVUDINE [Concomitant]
  5. TDF [Concomitant]
  6. CALCIUM WITH VITAMIN D [Concomitant]
  7. TEMAZEPAM [Concomitant]
  8. BACTRIM [Concomitant]

REACTIONS (1)
  - PNEUMONIA [None]
